FAERS Safety Report 8126617-9 (Version None)
Quarter: 2012Q1

REPORT INFORMATION
  Report Type: 
  Country: None (occurrence: None)
  Receive Date: 20120210
  Receipt Date: 20120131
  Transmission Date: 20120608
  Serious: No
  Sender: FDA-Public Use
  Company Number: US-BIOGENIDEC-2011BI013100

PATIENT
  Age: 41 Year
  Sex: Male

DRUGS (1)
  1. TYSABRI [Suspect]
     Indication: MULTIPLE SCLEROSIS
     Route: 042
     Dates: start: 20110209

REACTIONS (5)
  - MULTIPLE SCLEROSIS RELAPSE [None]
  - UPPER-AIRWAY COUGH SYNDROME [None]
  - AGEUSIA [None]
  - URINARY TRACT INFECTION [None]
  - LOWER RESPIRATORY TRACT INFECTION [None]
